FAERS Safety Report 5886572-9 (Version None)
Quarter: 2008Q3

REPORT INFORMATION
  Report Type: 
  Country: None (occurrence: None)
  Receive Date: 20080917
  Receipt Date: 20080910
  Transmission Date: 20090109
  Serious: Yes (Other)
  Sender: FDA-Public Use
  Company Number: GB-TEVA-177347ISR

PATIENT
  Age: 64 Year
  Sex: Female

DRUGS (1)
  1. ALENDRONATE SODIUM [Suspect]
     Indication: OSTEOPOROSIS
     Dates: start: 20070301, end: 20070401

REACTIONS (2)
  - LARYNGEAL OEDEMA [None]
  - VOCAL CORD DISORDER [None]
